FAERS Safety Report 6981643-8 (Version None)
Quarter: 2010Q3

REPORT INFORMATION
  Report Type: 
  Country: None (occurrence: None)
  Receive Date: 20100914
  Receipt Date: 20090930
  Transmission Date: 20110219
  Serious: No
  Sender: FDA-Public Use
  Company Number: US-PFIZER INC-2009261622

PATIENT
  Sex: Male
  Weight: 76 kg

DRUGS (11)
  1. LYRICA [Suspect]
     Indication: FIBROMYALGIA
     Dosage: 75 MG, 3X/DAY
     Route: 048
     Dates: start: 20090203, end: 20090901
  2. WELLBUTRIN [Concomitant]
     Dosage: 75 MG, 3X/DAY
     Route: 048
  3. WELLBUTRIN [Concomitant]
     Route: 048
  4. XANAX [Concomitant]
     Dosage: UNK
  5. LORTAB [Concomitant]
     Dosage: [HYDROCODONE BITARTRATE 75 MG]/[PARACETAMOL 500 MG], 3X/DAY
  6. BENTYL [Concomitant]
     Dosage: 5 MG, 3X/DAY
  7. BENTYL [Concomitant]
  8. NITROGLYCERIN [Concomitant]
     Dosage: UNK
  9. TENORMIN [Concomitant]
     Dosage: 25 MG, 1X/DAY
  10. LOMOTIL [Concomitant]
     Dosage: UNK
  11. SIMVASTATIN [Concomitant]
     Dosage: 20 MG, 1X/DAY

REACTIONS (2)
  - ABDOMINAL DISTENSION [None]
  - HYPERHIDROSIS [None]
